FAERS Safety Report 9723437 (Version 1)
Quarter: 2013Q4

REPORT INFORMATION
  Report Type: Spontaneous
  Country: ES (occurrence: ES)
  Receive Date: 20131202
  Receipt Date: 20131202
  Transmission Date: 20140711
  Serious: Yes (Other)
  Sender: FDA-Public Use
  Company Number: ES-BAYER-2013-142762

PATIENT
  Age: 39 Year
  Sex: Male
  Weight: 88 kg

DRUGS (1)
  1. ACTIRA [Suspect]
     Indication: RESPIRATORY TRACT INFECTION
     Dosage: 400 MG, UNK
     Route: 048
     Dates: start: 20131022, end: 20131022

REACTIONS (6)
  - Speech disorder [Unknown]
  - Tinnitus [Unknown]
  - Vision blurred [Unknown]
  - Respiratory distress [Unknown]
  - Arrhythmia [Unknown]
  - Nervousness [Unknown]
